FAERS Safety Report 19230934 (Version 2)
Quarter: 2021Q2

REPORT INFORMATION
  Report Type: Spontaneous
  Country: JP (occurrence: JP)
  Receive Date: 20210507
  Receipt Date: 20210514
  Transmission Date: 20210717
  Serious: Yes (Other)
  Sender: FDA-Public Use
  Company Number: JP-PFIZER INC-2021495148

PATIENT
  Age: 67 Year
  Sex: Female

DRUGS (7)
  1. CETUXIMAB. [Suspect]
     Active Substance: CETUXIMAB
     Indication: RECTAL CANCER
     Dosage: SLOWLY INFUSED (2.7 MG/MINUTE) (TOTAL 7 CYCLES ADMINISTERED)
  2. DEXAMETHASONE SODIUM PHOSPHATE. [Concomitant]
     Active Substance: DEXAMETHASONE SODIUM PHOSPHATE
     Indication: PREMEDICATION
     Dosage: 1.65 MG
  3. RESTAMINE CALCIUM [Concomitant]
     Indication: PREMEDICATION
     Dosage: 50 MG
  4. OXALIPLATIN. [Suspect]
     Active Substance: OXALIPLATIN
     Indication: RECTAL CANCER
     Dosage: 7 CYCLIC
  5. FAMOTIDINE. [Concomitant]
     Active Substance: FAMOTIDINE
     Indication: PREMEDICATION
     Dosage: 20 MG
  6. CALCIUM FOLINATE [Suspect]
     Active Substance: LEUCOVORIN CALCIUM
     Indication: RECTAL CANCER
     Dosage: 7 CYCLIC
  7. FLUOROURACIL. [Suspect]
     Active Substance: FLUOROURACIL
     Indication: RECTAL CANCER
     Dosage: 7 CYCLIC

REACTIONS (7)
  - Neutropenia [Unknown]
  - Toxicity to various agents [Unknown]
  - Anaemia [Unknown]
  - Neuropathy peripheral [Unknown]
  - Dysgeusia [Unknown]
  - Dermatitis [Unknown]
  - Thrombocytopenia [Unknown]
